FAERS Safety Report 5457023-3 (Version None)
Quarter: 2007Q3

REPORT INFORMATION
  Report Type: 
  Country: None (occurrence: None)
  Receive Date: 20070918
  Receipt Date: 20070716
  Transmission Date: 20080115
  Serious: Yes (Other)
  Sender: FDA-Public Use
  Company Number: US-ASTRAZENECA-2006UW27573

PATIENT
  Age: 72 Year
  Sex: Female

DRUGS (14)
  1. SEROQUEL [Suspect]
     Indication: MENTAL DISORDER
     Route: 048
     Dates: start: 20041019
  2. SEROQUEL [Suspect]
     Indication: DEPRESSION
     Route: 048
     Dates: start: 20041019
  3. RISPERDAL [Suspect]
     Indication: MENTAL DISORDER
     Dates: start: 20061005, end: 20061115
  4. RISPERDAL [Suspect]
     Indication: DEPRESSION
     Dates: start: 20061005, end: 20061115
  5. ZYPREXA [Suspect]
     Indication: MENTAL DISORDER
  6. ZYPREXA [Suspect]
     Indication: DEPRESSION
  7. ZYPREXA [Suspect]
  8. ZYPREXA [Suspect]
  9. ZYPREXA [Suspect]
  10. ZYPREXA [Suspect]
  11. ZYPREXA [Suspect]
  12. ZYPREXA [Suspect]
  13. ZYPREXA [Suspect]
  14. ZYPREXA [Suspect]

REACTIONS (2)
  - PANCREATITIS [None]
  - TYPE 2 DIABETES MELLITUS [None]
